FAERS Safety Report 8352322-X (Version None)
Quarter: 2012Q2

REPORT INFORMATION
  Report Type: 
  Country: None (occurrence: None)
  Receive Date: 20120511
  Receipt Date: 20120504
  Transmission Date: 20120825
  Serious: Yes (Other)
  Sender: FDA-Public Use
  Company Number: DE-UCBSA-050629

PATIENT
  Age: 24 Month
  Sex: Male

DRUGS (2)
  1. VIMPAT [Suspect]
     Indication: CONVULSION
     Dosage: 15MG/ML; ROUTE: VIA JEJUNAL TUBE (PEG)
     Route: 050
  2. PHENYTOIN [Concomitant]

REACTIONS (3)
  - TONIC CONVULSION [None]
  - APNOEA [None]
  - BRADYCARDIA [None]
